FAERS Safety Report 6108636-7 (Version None)
Quarter: 2009Q1

REPORT INFORMATION
  Report Type: 
  Country: None (occurrence: None)
  Receive Date: 20090305
  Receipt Date: 20090226
  Transmission Date: 20090719
  Serious: Yes (Other)
  Sender: FDA-Public Use
  Company Number: TCI2009A00661

PATIENT
  Age: 60 Year
  Sex: Male

DRUGS (8)
  1. ACTOS [Suspect]
     Indication: DIABETES MELLITUS
     Dosage: 15 MG (15 MG, 1 D)
     Route: 048
     Dates: start: 20080514, end: 20080709
  2. BASEN (VOGLIBOSE) [Concomitant]
  3. AMARYL [Concomitant]
  4. KINEDAK (EPALRESTAT) [Concomitant]
  5. METHYLCOBAL (MECOBALAMIN) [Concomitant]
  6. TAURINE (TAURINE) [Concomitant]
  7. ALLEGRA [Concomitant]
  8. CRESTOR [Concomitant]

REACTIONS (2)
  - DIZZINESS [None]
  - DYSSTASIA [None]
